FAERS Safety Report 11808207 (Version 1)
Quarter: 2015Q4

REPORT INFORMATION
  Report Type: Spontaneous
  Country: US (occurrence: US)
  Receive Date: 20151207
  Receipt Date: 20151207
  Transmission Date: 20160305
  Serious: No
  Sender: FDA-Public Use
  Company Number: US-NOVELLABS-2015-US-000051

PATIENT
  Age: 67 Year
  Sex: Female
  Weight: 79.38 kg

DRUGS (4)
  1. CALCIUM 500MG [Concomitant]
  2. POLYETHYLENE GLYCOL 3350. [Suspect]
     Active Substance: POLYETHYLENE GLYCOL 3350
     Dosage: 1 POUCH,ONCE A WEEK AS NEEDED,
     Route: 048
     Dates: start: 20150301, end: 20150522
  3. MULTI VITAMIN [Concomitant]
     Active Substance: VITAMINS
  4. VITAMIN C 500MG [Concomitant]

REACTIONS (1)
  - Drug ineffective [Unknown]

NARRATIVE: CASE EVENT DATE: 20150301
